FAERS Safety Report 19840930 (Version 1)
Quarter: 2021Q3

REPORT INFORMATION
  Report Type: Spontaneous
  Country: US (occurrence: US)
  Receive Date: 20210916
  Receipt Date: 20210916
  Transmission Date: 20211014
  Serious: Yes (Other)
  Sender: FDA-Public Use
  Company Number: None

PATIENT
  Age: 26 Year
  Sex: Female
  Weight: 78.75 kg

DRUGS (1)
  1. JAH GUMMIES WHAT?A?MELON [DELTA?8 THC] [Suspect]
     Active Substance: .DELTA.8-TETRAHYDROCANNABINOL\HERBALS
     Indication: SUBSTANCE USE
     Dosage: ?          QUANTITY:1 ONE GUMMY CANDY;OTHER FREQUENCY:TAKEN ONCE;?
     Route: 048
     Dates: start: 20210803, end: 20210803

REACTIONS (9)
  - Hunger [None]
  - Tremor [None]
  - Heart rate increased [None]
  - Dyspnoea [None]
  - Chills [None]
  - Ocular hyperaemia [None]
  - Feeling cold [None]
  - Cold sweat [None]
  - Fatigue [None]

NARRATIVE: CASE EVENT DATE: 20210803
